FAERS Safety Report 15718467 (Version 1)
Quarter: 2018Q4

REPORT INFORMATION
  Report Type: Spontaneous
  Country: US (occurrence: US)
  Receive Date: 20181213
  Receipt Date: 20181213
  Transmission Date: 20190205
  Serious: Yes (Hospitalization)
  Sender: FDA-Public Use
  Company Number: None

PATIENT
  Sex: Female

DRUGS (10)
  1. ALPRAZOLAM TAB 0.5MG [Concomitant]
     Dates: start: 20180905
  2. SILDENAFIL. [Suspect]
     Active Substance: SILDENAFIL
     Indication: PULMONARY ARTERIAL HYPERTENSION
     Route: 048
  3. FUROSEMIDE TAB 40MG [Concomitant]
     Dates: start: 20181022
  4. GABAPENTIN CAP 300MG [Concomitant]
     Active Substance: GABAPENTIN
     Dates: start: 20181022
  5. SPIRONOLACTONE TAB 25MG [Concomitant]
     Dates: start: 20180901
  6. ALPRAZOLAM TAB 0.5MG [Concomitant]
     Dates: start: 20181109
  7. PANTOPRAZOLE TAB 40MG [Concomitant]
     Dates: start: 20181022
  8. ATORVASTATIN TAB 40MG [Concomitant]
     Dates: start: 20180824
  9. FOLIC ACID TAB 1000MCG [Concomitant]
     Dates: start: 20180824
  10. DILTIAZEM TAB 30MG [Concomitant]
     Dates: start: 20181001

REACTIONS (1)
  - Cardiac operation [None]
